FAERS Safety Report 23706767 (Version 1)
Quarter: 2024Q2

REPORT INFORMATION
  Report Type: Spontaneous
  Country: US (occurrence: US)
  Receive Date: 20240404
  Receipt Date: 20240404
  Transmission Date: 20240716
  Serious: Yes (Death, Hospitalization, Other)
  Sender: FDA-Public Use
  Company Number: US-DRL-USA-LIT/USA/24/0005010

PATIENT
  Age: 41 Year

DRUGS (2)
  1. BIVALIRUDIN [Suspect]
     Active Substance: BIVALIRUDIN
     Indication: Anticoagulant therapy
     Dosage: 0.02 MG/KG/H
  2. BIVALIRUDIN [Suspect]
     Active Substance: BIVALIRUDIN
     Indication: Lung assist device therapy
     Dosage: 0.02 MG/KG (16H)

REACTIONS (3)
  - Death [Fatal]
  - Off label use [Unknown]
  - Haemorrhage [Unknown]
